FAERS Safety Report 12433182 (Version 1)
Quarter: 2016Q2

REPORT INFORMATION
  Report Type: Spontaneous
  Country: US (occurrence: None)
  Receive Date: 20160603
  Receipt Date: 20160603
  Transmission Date: 20160815
  Serious: No
  Sender: FDA-Public Use
  Company Number: None

PATIENT
  Age: 31 Year
  Sex: Female
  Weight: 68.49 kg

DRUGS (2)
  1. RHOGAM ULTRA-FILTERED PLUS [Suspect]
     Active Substance: HUMAN RHO(D) IMMUNE GLOBULIN
     Indication: RHESUS ANTIGEN NEGATIVE
     Route: 030
     Dates: start: 20160516, end: 20160516
  2. RHOGAM ULTRA-FILTERED PLUS [Suspect]
     Active Substance: HUMAN RHO(D) IMMUNE GLOBULIN
     Indication: PREGNANCY
     Route: 030
     Dates: start: 20160516, end: 20160516

REACTIONS (3)
  - Medical device site pain [None]
  - Product packaging issue [None]
  - Needle issue [None]

NARRATIVE: CASE EVENT DATE: 20160516
